FAERS Safety Report 25548683 (Version 2)
Quarter: 2025Q3

REPORT INFORMATION
  Report Type: Report from Study
  Country: CO (occurrence: CO)
  Receive Date: 20250714
  Receipt Date: 20250716
  Transmission Date: 20251021
  Serious: Yes (Death, Hospitalization, Other)
  Sender: TAKEDA
  Company Number: CO-TAKEDA-2025TUS062933

PATIENT
  Age: 50 Year
  Sex: Male
  Weight: 72 kg

DRUGS (1)
  1. PONATINIB [Suspect]
     Active Substance: PONATINIB
     Indication: Chronic myeloid leukaemia
     Dates: start: 20250227, end: 20250629

REACTIONS (3)
  - Sepsis [Fatal]
  - Multiple organ dysfunction syndrome [Unknown]
  - Pulmonary function test decreased [Unknown]

NARRATIVE: CASE EVENT DATE: 20250628
